FAERS Safety Report 8246816-5 (Version None)
Quarter: 2012Q1

REPORT INFORMATION
  Report Type: 
  Country: None (occurrence: None)
  Receive Date: 20120330
  Receipt Date: 20120327
  Transmission Date: 20120608
  Serious: Yes (Hospitalization)
  Sender: FDA-Public Use
  Company Number: US-SANOFI-AVENTIS-2011SA077808

PATIENT
  Age: 66 Year
  Sex: Male
  Weight: 88.4 kg

DRUGS (30)
  1. PLAVIX [Suspect]
     Route: 048
  2. CARVEDILOL [Concomitant]
     Route: 048
  3. GLIPIZIDE [Concomitant]
     Route: 048
  4. NITROSTAT [Concomitant]
     Indication: CHEST PAIN
     Route: 060
  5. ASPIRIN [Concomitant]
     Indication: PROPHYLAXIS
     Route: 048
  6. DOCUSATE SODIUM/SENNOSIDE A+B [Concomitant]
     Indication: CONSTIPATION
     Route: 048
  7. MAGNESIUM OXIDE [Concomitant]
     Route: 048
  8. MULTI-VITAMINS [Concomitant]
     Indication: VITAMIN SUPPLEMENTATION
     Route: 048
  9. PLAVIX [Suspect]
     Route: 048
     Dates: start: 20101101, end: 20111004
  10. PLAVIX [Suspect]
     Indication: CORONARY ARTERY DISEASE
     Route: 048
     Dates: start: 20101101, end: 20111004
  11. PLAVIX [Suspect]
     Route: 048
  12. ALL OTHER THERAPEUTIC PRODUCTS [Concomitant]
     Route: 061
  13. SIMVASTATIN [Concomitant]
     Route: 048
  14. VALSARTAN [Concomitant]
     Route: 048
  15. MAGNESIUM HYDROXIDE TAB [Concomitant]
  16. GABAPENTIN [Concomitant]
     Indication: PAIN
     Route: 048
  17. GEMFIBROZIL [Concomitant]
     Route: 048
  18. OXYCODONE HCL [Concomitant]
     Route: 048
  19. PLAVIX [Suspect]
     Indication: ANTIPLATELET THERAPY
     Route: 048
     Dates: start: 20101101, end: 20111004
  20. PLAVIX [Suspect]
     Route: 048
  21. COUMADIN [Concomitant]
  22. OMEPRAZOLE [Concomitant]
     Dates: start: 20110816
  23. ACARBOSE [Concomitant]
     Route: 048
  24. FUROSEMIDE [Concomitant]
     Indication: FLUID RETENTION
     Route: 048
  25. ALL OTHER THERAPEUTIC PRODUCTS [Concomitant]
     Route: 061
  26. ALL OTHER THERAPEUTIC PRODUCTS [Concomitant]
  27. DIGOXIN [Concomitant]
     Route: 048
  28. FLUCONAZOLE [Concomitant]
     Indication: FUNGAL INFECTION
     Route: 048
  29. LACTULOSE [Concomitant]
     Route: 048
  30. CHOLECALCIFEROL [Concomitant]
     Indication: NUTRITIONAL SUPPORT
     Dosage: DOSE:2000 UNIT(S)
     Route: 048

REACTIONS (2)
  - PAIN [None]
  - GASTRITIS [None]
